FAERS Safety Report 10664383 (Version 1)
Quarter: 2014Q4

REPORT INFORMATION
  Report Type: Spontaneous
  Country: US (occurrence: US)
  Receive Date: 20141219
  Receipt Date: 20141219
  Transmission Date: 20150529
  Serious: No
  Sender: FDA-Public Use
  Company Number: US-BIOGENIDEC-2014BI133579

PATIENT
  Age: 47 Year
  Sex: Female

DRUGS (10)
  1. PROMETHAZINE [Concomitant]
     Active Substance: PROMETHAZINE\PROMETHAZINE HYDROCHLORIDE
  2. DULOXETINE [Concomitant]
     Active Substance: DULOXETINE
  3. GABAPENTIN. [Concomitant]
     Active Substance: GABAPENTIN
  4. TOPIRAMATE. [Concomitant]
     Active Substance: TOPIRAMATE
  5. SUMATRIPTAN. [Concomitant]
     Active Substance: SUMATRIPTAN
  6. CYMBALTA [Concomitant]
     Active Substance: DULOXETINE HYDROCHLORIDE
  7. TECFIDERA [Suspect]
     Active Substance: DIMETHYL FUMARATE
     Indication: MULTIPLE SCLEROSIS
     Route: 048
     Dates: start: 20140328
  8. TRAMADOL [Concomitant]
     Active Substance: TRAMADOL
  9. HYDROCODONE [Concomitant]
     Active Substance: HYDROCODONE
  10. ZOLPIDEM [Concomitant]
     Active Substance: ZOLPIDEM\ZOLPIDEM TARTRATE

REACTIONS (4)
  - Peripheral swelling [Unknown]
  - Flushing [Unknown]
  - Diarrhoea [Unknown]
  - Paraesthesia [Unknown]

NARRATIVE: CASE EVENT DATE: 20141011
